FAERS Safety Report 5924651-8 (Version None)
Quarter: 2008Q3

REPORT INFORMATION
  Report Type: 
  Country: None (occurrence: None)
  Receive Date: 20080909
  Receipt Date: 20080624
  Transmission Date: 20090109
  Serious: Yes (Hospitalization)
  Sender: FDA-Public Use
  Company Number: 163-20785-08021745

PATIENT
  Age: 4 Year
  Sex: Female

DRUGS (1)
  1. THALOMID [Suspect]
     Indication: GRAFT VERSUS HOST DISEASE
     Dosage: 100 MG, OD, ORAL
     Route: 048
     Dates: start: 20080131

REACTIONS (1)
  - PNEUMONIA [None]
